FAERS Safety Report 15310544 (Version 1)
Quarter: 2018Q4

REPORT INFORMATION
  Report Type: Other
  Country: ES (occurrence: ES)
  Receive Date: 20180823
  Receipt Date: 20180823
  Transmission Date: 20190204
  Serious: Yes (Hospitalization)
  Sender: FDA-Public Use
  Company Number: ES-APOTEX-2018AP019284

PATIENT
  Age: 90 Year
  Sex: Male

DRUGS (1)
  1. CIPROFLOXACINO LAREQ COMPRIMIDOS RECUBIERTOS CON PELICULA EFG [Suspect]
     Active Substance: CIPROFLOXACIN HYDROCHLORIDE
     Indication: URINARY TRACT INFECTION
     Dosage: 500 MG, Q.12H
     Route: 048
     Dates: start: 20151229, end: 20161105

REACTIONS (2)
  - Diarrhoea [Recovered/Resolved]
  - Dysbacteriosis [Recovered/Resolved]

NARRATIVE: CASE EVENT DATE: 20151229
